FAERS Safety Report 15271498 (Version 4)
Quarter: 2018Q3

REPORT INFORMATION
  Report Type: Report from Study
  Country: GB (occurrence: GB)
  Receive Date: 20180813
  Receipt Date: 20180927
  Transmission Date: 20181010
  Serious: Yes (Hospitalization)
  Sender: FDA-Public Use
  Company Number: GB-ASTELLAS-2018US035707

PATIENT
  Age: 70 Year
  Sex: Male

DRUGS (1)
  1. ENZALUTAMIDE [Suspect]
     Active Substance: ENZALUTAMIDE
     Indication: HORMONE-REFRACTORY PROSTATE CANCER
     Route: 048
     Dates: start: 20180730

REACTIONS (5)
  - Anaemia [Recovered/Resolved with Sequelae]
  - Anaemia [Recovered/Resolved with Sequelae]
  - Haematuria [Recovered/Resolved with Sequelae]
  - Haematuria [Recovered/Resolved with Sequelae]
  - Haematuria [Recovered/Resolved with Sequelae]

NARRATIVE: CASE EVENT DATE: 20180801
